FAERS Safety Report 9102341 (Version 1)
Quarter: 2013Q1

REPORT INFORMATION
  Report Type: Spontaneous
  Country: AU (occurrence: AU)
  Receive Date: 20130219
  Receipt Date: 20130219
  Transmission Date: 20140127
  Serious: Yes (Hospitalization)
  Sender: FDA-Public Use
  Company Number: AU-PFIZER INC-2013059433

PATIENT
  Age: 80 Year
  Sex: Male

DRUGS (1)
  1. CELEBREX [Suspect]
     Indication: OSTEOARTHRITIS
     Dosage: 200 MG, UNK

REACTIONS (4)
  - Renal failure [Recovering/Resolving]
  - Viral infection [Recovering/Resolving]
  - Asthenia [Recovering/Resolving]
  - Dehydration [Recovering/Resolving]
